FAERS Safety Report 7795268-8 (Version None)
Quarter: 2011Q4

REPORT INFORMATION
  Report Type: 
  Country: None (occurrence: None)
  Receive Date: 20111004
  Receipt Date: 20110926
  Transmission Date: 20120403
  Serious: Yes (Hospitalization, Other)
  Sender: FDA-Public Use
  Company Number: US-US-EMD SERONO, INC.-7082136

PATIENT
  Sex: Female

DRUGS (5)
  1. DEPAKOTE ER [Concomitant]
     Indication: CONVULSION
  2. REBIF [Suspect]
     Indication: MULTIPLE SCLEROSIS
     Route: 058
     Dates: start: 20030417
  3. TEGRETOL [Concomitant]
  4. NEURONTIN [Concomitant]
  5. TRILEPTAL [Concomitant]
     Indication: CONVULSION

REACTIONS (4)
  - GRAND MAL CONVULSION [None]
  - INJECTION SITE ERYTHEMA [None]
  - MULTIPLE SCLEROSIS RELAPSE [None]
  - HYPERTENSION [None]
